FAERS Safety Report 9565177 (Version 3)
Quarter: 2015Q4

REPORT INFORMATION
  Report Type: Report from Study
  Country: US (occurrence: US)
  Receive Date: 20130930
  Receipt Date: 20151019
  Transmission Date: 20160305
  Serious: Yes (Other)
  Sender: FDA-Public Use
  Company Number: US-ROCHE-1271005

PATIENT
  Sex: Male
  Weight: 75.36 kg

DRUGS (10)
  1. LASIX [Concomitant]
     Active Substance: FUROSEMIDE
     Route: 048
  2. HYDROCHLOROTHIAZIDE/METOPROLOL SUCCINATE [Concomitant]
     Active Substance: HYDROCHLOROTHIAZIDE\METOPROLOL SUCCINATE
     Route: 065
  3. HERCEPTIN [Suspect]
     Active Substance: TRASTUZUMAB
     Dosage: OUTSIDE THE RX
     Route: 042
  4. FERROUS SULFATE [Concomitant]
     Active Substance: FERROUS SULFATE\FERROUS SULFATE, DRIED
     Route: 048
  5. HERCEPTIN [Suspect]
     Active Substance: TRASTUZUMAB
     Indication: SALIVARY GLAND CANCER
     Dosage: 6 MG/KG
     Route: 042
     Dates: start: 20120905, end: 20130919
  6. LEVOXYL [Concomitant]
     Active Substance: LEVOTHYROXINE SODIUM
     Route: 048
  7. LORAZEPAM. [Concomitant]
     Active Substance: LORAZEPAM
     Indication: NAUSEA
     Dosage: AS NEEDED
     Route: 048
  8. CREON [Concomitant]
     Active Substance: PANCRELIPASE AMYLASE\PANCRELIPASE LIPASE\PANCRELIPASE PROTEASE
     Dosage: WITH MEALS
     Route: 048
  9. COUMADIN [Concomitant]
     Active Substance: WARFARIN SODIUM
     Route: 048
  10. DIGOXIN. [Concomitant]
     Active Substance: DIGOXIN
     Route: 048

REACTIONS (9)
  - Hypothyroidism [Unknown]
  - Periorbital oedema [Unknown]
  - Heart rate irregular [Unknown]
  - Anaemia [Recovering/Resolving]
  - Eye swelling [Unknown]
  - Atrial fibrillation [Unknown]
  - Cellulitis [Recovered/Resolved]
  - Calculus bladder [Unknown]
  - Urethral stenosis [Unknown]
